FAERS Safety Report 4717771-7 (Version None)
Quarter: 2005Q3

REPORT INFORMATION
  Report Type: 
  Country: None (occurrence: None)
  Receive Date: 20050715
  Receipt Date: 20041228
  Transmission Date: 20060218
  Serious: Yes (Other)
  Sender: FDA-Public Use
  Company Number: 2004-00984

PATIENT
  Age: 68 Year
  Sex: Female
  Weight: 99.8 kg

DRUGS (3)
  1. INTEGRILIN [Suspect]
     Indication: CORONARY ANGIOPLASTY
     Dosage: 180.00 UG/KG, X2, INTRAVENOUS
     Route: 042
     Dates: start: 20020201, end: 20020201
  2. HEPARIN [Concomitant]
  3. ASPIRIN [Concomitant]

REACTIONS (1)
  - RETROPERITONEAL HAEMORRHAGE [None]
